FAERS Safety Report 5610305-4 (Version None)
Quarter: 2008Q1

REPORT INFORMATION
  Report Type: 
  Country: None (occurrence: None)
  Receive Date: 20080111
  Receipt Date: 20070430
  Transmission Date: 20080703
  Serious: Yes (Hospitalization, Other)
  Sender: FDA-Public Use
  Company Number: HQWYE161615JUL04

PATIENT
  Age: 49 Year
  Sex: Female
  Weight: 88.53 kg

DRUGS (2)
  1. PREMPRO [Suspect]
     Dates: start: 19810101, end: 19900101
  2. PREMARIN [Suspect]
     Dates: start: 19900101, end: 19980701

REACTIONS (2)
  - BREAST CANCER [None]
  - CEREBROVASCULAR ACCIDENT [None]
